FAERS Safety Report 11333271 (Version 1)
Quarter: 2015Q3

REPORT INFORMATION
  Report Type: Spontaneous
  Country: US (occurrence: US)
  Receive Date: 20150803
  Receipt Date: 20150803
  Transmission Date: 20151125
  Serious: No
  Sender: FDA-Public Use
  Company Number: US-ELI_LILLY_AND_COMPANY-US200712001275

PATIENT
  Age: 10 Year
  Sex: Male
  Weight: 34.01 kg

DRUGS (1)
  1. ZYPREXA [Suspect]
     Active Substance: OLANZAPINE
     Indication: BIPOLAR DISORDER
     Dosage: 10 UNK, UNK
     Route: 048

REACTIONS (5)
  - Weight increased [Not Recovered/Not Resolved]
  - Dyskinesia [Unknown]
  - Jaw disorder [Not Recovered/Not Resolved]
  - Toothache [Unknown]
  - Pain in jaw [Unknown]

NARRATIVE: CASE EVENT DATE: 2007
